FAERS Safety Report 20215271 (Version 1)
Quarter: 2021Q4

REPORT INFORMATION
  Report Type: Spontaneous
  Country: US (occurrence: US)
  Receive Date: 20211222
  Receipt Date: 20211222
  Transmission Date: 20220303
  Serious: Yes (Hospitalization)
  Sender: FDA-Public Use
  Company Number: US-LUPIN PHARMACEUTICALS INC.-2021-25027

PATIENT
  Age: 57 Year
  Sex: Male

DRUGS (49)
  1. OXYCODONE AND ACETAMINOPHEN [Suspect]
     Active Substance: ACETAMINOPHEN\OXYCODONE HYDROCHLORIDE
     Indication: Cancer pain
     Dosage: UNK 10-325 MG
     Route: 065
  2. MORPHINE [Suspect]
     Active Substance: MORPHINE
     Indication: Cancer pain
     Dosage: UNK
     Route: 065
  3. MORPHINE [Suspect]
     Active Substance: MORPHINE
     Dosage: 291 MILLIGRAM EQUIVALENT DOSE ON DAY 2
     Route: 048
  4. MORPHINE [Suspect]
     Active Substance: MORPHINE
     Dosage: 626 MILLIGRAM EQUIVALENT DOSE ON DAY 3
     Route: 048
  5. MORPHINE [Suspect]
     Active Substance: MORPHINE
     Dosage: 812 MILLIGRAM EQUIVALENT DOSE ON DAY 5
     Route: 048
  6. MORPHINE [Suspect]
     Active Substance: MORPHINE
     Dosage: 960 MILLIGRAM EQUIVALENT DOSE ON DAY 6
     Route: 048
  7. MORPHINE [Suspect]
     Active Substance: MORPHINE
     Dosage: 1125 MILLIGRAM EQUIVALENT DOSE ON DAY 7
     Route: 048
  8. MORPHINE [Suspect]
     Active Substance: MORPHINE
     Dosage: 720 MILLIGRAM EQUIVALENT DOSE ON DAY 10
     Route: 048
  9. MORPHINE [Suspect]
     Active Substance: MORPHINE
     Dosage: 744 MILLIGRAM EQUIVALENT DOSE ON DAY 11
     Route: 048
  10. MORPHINE [Suspect]
     Active Substance: MORPHINE
     Dosage: 1044 MILLIGRAM EQUIVALENT DOSE ON DAY 13
     Route: 048
  11. MORPHINE [Suspect]
     Active Substance: MORPHINE
     Dosage: 790 MILLIGRAM EQUIVALENT DOSE ON DAY 16
     Route: 048
  12. MORPHINE [Suspect]
     Active Substance: MORPHINE
     Dosage: 1131 MILLIGRAM EQUIVALENT DOSE ON DAY 17
     Route: 048
  13. MORPHINE [Suspect]
     Active Substance: MORPHINE
     Dosage: 804 MILLIGRAM EQUIVALENT DOSE ON DAY 18
     Route: 048
  14. MORPHINE [Suspect]
     Active Substance: MORPHINE
     Dosage: 726 MILLIGRAM EQUIVALENT DOSE ON DAY 19
     Route: 048
  15. MORPHINE [Suspect]
     Active Substance: MORPHINE
     Dosage: 2 MG PER HOUR, PCA ON DAY 10, 11 AND 12
     Route: 042
  16. MORPHINE [Suspect]
     Active Substance: MORPHINE
     Dosage: 10 MG PER 20 MIN, DEMAND DOSE ON DAY 10, 11 AND 12
     Route: 042
  17. MORPHINE [Suspect]
     Active Substance: MORPHINE
     Dosage: 10 MG PER 10 MIN,  PCA ON DAY 16 AND 17 (LOCK-OUT DOSE
     Route: 042
  18. MORPHINE [Suspect]
     Active Substance: MORPHINE
     Dosage: 10 MG PER HOUR, ON DAY 18
     Route: 042
  19. MORPHINE [Suspect]
     Active Substance: MORPHINE
     Dosage: 10 MG PER HOUR, PRN ON DAY 18
     Route: 042
  20. MORPHINE [Suspect]
     Active Substance: MORPHINE
     Dosage: 15 MG PER HOUR, ON DAY 19
     Route: 042
  21. MORPHINE [Suspect]
     Active Substance: MORPHINE
     Dosage: 20 MG PER HOUR, PRN ON DAY 19
     Route: 042
  22. TRAMADOL HYDROCHLORIDE [Suspect]
     Active Substance: TRAMADOL HYDROCHLORIDE
     Indication: Cancer pain
     Dosage: 100 MILLIGRAM, QD AT NIGHT, PRN DOSE
     Route: 065
  23. CLONIDINE HYDROCHLORIDE [Suspect]
     Active Substance: CLONIDINE HYDROCHLORIDE
     Indication: Cancer pain
     Dosage: 0.1 MILLIGRAM THREE TIMES DAILY
     Route: 065
  24. CLONIDINE HYDROCHLORIDE [Suspect]
     Active Substance: CLONIDINE HYDROCHLORIDE
     Dosage: 0.2 MILLIGRAM THREE TIMES DAILY
     Route: 065
  25. CLONIDINE HYDROCHLORIDE [Suspect]
     Active Substance: CLONIDINE HYDROCHLORIDE
     Dosage: 0.3 MILLIGRAM THREE TIMES DAILY
     Route: 065
  26. HYDROMORPHONE [Suspect]
     Active Substance: HYDROMORPHONE
     Indication: Cancer pain
     Dosage: 0.5 MILLIGRAM PCA ON DAY 2
     Route: 065
  27. HYDROMORPHONE [Suspect]
     Active Substance: HYDROMORPHONE
     Dosage: 1 MILLIGRAM RESCUE DOSE ON DAY 2 (5 DOSES)
     Route: 065
  28. HYDROMORPHONE [Suspect]
     Active Substance: HYDROMORPHONE
     Dosage: 0.7 MILLIGRAM PCA ON DAY 3
     Route: 065
  29. HYDROMORPHONE [Suspect]
     Active Substance: HYDROMORPHONE
     Dosage: 1.5 MILLIGRAM RESCUE DOSE ON DAY 3 (5 DOSES)
     Route: 065
  30. HYDROMORPHONE [Suspect]
     Active Substance: HYDROMORPHONE
     Dosage: 0.5 MILLIGRAM PCA ON DAY 5, DAY 6 AND DAY 7
     Route: 065
  31. HYDROMORPHONE [Suspect]
     Active Substance: HYDROMORPHONE
     Dosage: 1 MILLIGRAM DEMAND DOSE ON DAY 5, DAY 6 AND DAY 7
     Route: 065
  32. HYDROMORPHONE [Suspect]
     Active Substance: HYDROMORPHONE
     Dosage: 2 MILLIGRAM RESCUE DOSE ON DAY 5, DAY 6 AND DAY 7 (3 DOSES)
     Route: 065
  33. LORAZEPAM [Suspect]
     Active Substance: LORAZEPAM
     Indication: Agitation
     Dosage: 1 MILLIGRAM TOTAL DOSE (5MG) FOR AGITATION ON DAY 2
     Route: 042
  34. LORAZEPAM [Suspect]
     Active Substance: LORAZEPAM
     Indication: Anxiety
     Dosage: 1 MILLIGRAM TOTAL DOSE (3MG) FOR AGITATION ON DAY 3 AND 5
     Route: 042
  35. LORAZEPAM [Suspect]
     Active Substance: LORAZEPAM
     Dosage: 1 MILLIGRAM FOR ANXIETY (TOTAL 6MG ON DAY 17 AND 6MG ON DAY 18)
     Route: 042
  36. METHADONE [Suspect]
     Active Substance: METHADONE HYDROCHLORIDE
     Indication: Drug use disorder
     Dosage: 250 MILLIGRAM, QD FOR OPIOID USE DISORDER
     Route: 065
     Dates: start: 2017
  37. METHADONE [Suspect]
     Active Substance: METHADONE HYDROCHLORIDE
     Indication: Cancer pain
     Dosage: UNK
     Route: 065
  38. OXYCONTIN [Suspect]
     Active Substance: OXYCODONE HYDROCHLORIDE
     Indication: Cancer pain
     Dosage: 60 MILLIGRAM (EXTENDED-RELEASE ON DAY 16 AND DAY 17)
     Route: 048
  39. DIAZEPAM [Suspect]
     Active Substance: DIAZEPAM
     Indication: Anxiety
     Dosage: 10 MILLIGRAM ON DAY 6 AND DAY 7
     Route: 048
  40. DIAZEPAM [Suspect]
     Active Substance: DIAZEPAM
     Dosage: 10 MILLIGRAM ON DAY 10, 11 AND 13
     Route: 048
  41. DIAZEPAM [Suspect]
     Active Substance: DIAZEPAM
     Dosage: 10 MILLIGRAM ON DAY 16 AND DAY 17
     Route: 048
  42. DIAZEPAM [Suspect]
     Active Substance: DIAZEPAM
     Dosage: 5 MILLIGRAM PRN DOSE FROM DAY 6-DAY 13
     Route: 048
  43. DIAZEPAM [Suspect]
     Active Substance: DIAZEPAM
     Dosage: 5 MILLIGRAM PRN DOSE ON DAY 16-17
     Route: 048
  44. DIAZEPAM [Suspect]
     Active Substance: DIAZEPAM
     Dosage: UNK
     Route: 065
  45. TRAZODONE [Suspect]
     Active Substance: TRAZODONE HYDROCHLORIDE
     Indication: Cancer pain
     Dosage: 50 MILLIGRAM, QD AT NIGHT ON DAY 2
     Route: 065
  46. TRAZODONE [Suspect]
     Active Substance: TRAZODONE HYDROCHLORIDE
     Dosage: 100 MILLIGRAM, QD NIGHTLY DOSE FROM DAY 3-DAY 17
     Route: 065
  47. LIDOCAINE [Suspect]
     Active Substance: LIDOCAINE
     Indication: Cancer pain
     Dosage: 2 MILLIGRAM/KILOGRAM LOADING DOSE
     Route: 065
  48. LIDOCAINE [Suspect]
     Active Substance: LIDOCAINE
     Dosage: 1 MILLIGRAM/KILOGRAM MAINTENANCE DOSE
     Route: 065
  49. GABAPENTIN [Concomitant]
     Active Substance: GABAPENTIN
     Indication: Cancer pain
     Dosage: UNK
     Route: 065

REACTIONS (1)
  - Drug ineffective [Unknown]
